FAERS Safety Report 4726839-0 (Version None)
Quarter: 2005Q3

REPORT INFORMATION
  Report Type: 
  Country: None (occurrence: None)
  Receive Date: 20050726
  Receipt Date: 20050715
  Transmission Date: 20060218
  Serious: Yes (Hospitalization)
  Sender: FDA-Public Use
  Company Number: 200313468GDS

PATIENT
  Age: 68 Year
  Sex: Male

DRUGS (16)
  1. ASPIRIN [Suspect]
     Indication: CARDIOVASCULAR DISORDER
     Dosage: 81  MG, TOTAL DAILY
     Dates: end: 20031018
  2. ASPIRIN [Suspect]
     Indication: PROPHYLAXIS
     Dosage: 81  MG, TOTAL DAILY
     Dates: end: 20031018
  3. MICARDIS [Suspect]
     Indication: DIABETIC NEPHROPATHY
     Dosage: ORAL
     Route: 048
  4. COUMADIN [Suspect]
     Indication: ATRIAL FIBRILLATION
     Dosage: 4, 6 MG, Q2WK
     Dates: end: 20031018
  5. HEPARIN [Suspect]
     Indication: THROMBOSIS PROPHYLAXIS
     Route: 058
     Dates: start: 20031019
  6. NORVASC [Concomitant]
  7. AVAPRO [Concomitant]
  8. METOPROLOL [Concomitant]
  9. ISOSORBIDE MONONITRATE [Concomitant]
  10. FUROSEMIDE [Concomitant]
  11. LIPITOR [Concomitant]
  12. PRANDIN [Concomitant]
  13. INSULIN [Concomitant]
  14. PREVACID [Concomitant]
  15. AMITRIPTYLINE [Concomitant]
  16. CYCLOBENZAPRINE HCL [Concomitant]

REACTIONS (10)
  - ARTERIAL OCCLUSIVE DISEASE [None]
  - COLONIC POLYP [None]
  - COLONOSCOPY ABNORMAL [None]
  - CONDITION AGGRAVATED [None]
  - COUGH [None]
  - DYSPNOEA [None]
  - HAEMATOCRIT DECREASED [None]
  - INCISION SITE HAEMORRHAGE [None]
  - OCCULT BLOOD POSITIVE [None]
  - POST PROCEDURAL COMPLICATION [None]
